FAERS Safety Report 6994677-4 (Version None)
Quarter: 2010Q3

REPORT INFORMATION
  Report Type: 
  Country: None (occurrence: None)
  Receive Date: 20100915
  Receipt Date: 20100831
  Transmission Date: 20110219
  Serious: Yes (Other)
  Sender: FDA-Public Use
  Company Number: GLIP20100001

PATIENT
  Age: 58 Year
  Sex: Male

DRUGS (11)
  1. GLIPIZIDE [Suspect]
     Indication: TYPE 2 DIABETES MELLITUS
     Dosage: 10 MG DAILY, ORAL
     Route: 048
  2. METFORMIN HCL [Suspect]
     Indication: TYPE 2 DIABETES MELLITUS
     Dosage: 1000 MG BID, ORAL, 500 MG BID, ORAL
     Route: 048
  3. ROSUVASTATIN (ROSUVASTATIN) (ROSUVASTATIN) [Concomitant]
  4. FENOFIBRATE [Concomitant]
  5. ASPIRIN [Concomitant]
  6. LISINOPRIL [Concomitant]
  7. GABAPENTIN (GABAPENTIN) (GABAPENTIN) [Concomitant]
  8. TRAMADOL HCL [Concomitant]
  9. NABUMETONE (NABUMETONE) (NABUMETONE) [Concomitant]
  10. NITROGLYCERIN [Concomitant]
  11. PRICKLY PEAR CACTUS (PLANT ALKALOIDS AND OTHER NATURAL PRODUCTS) [Suspect]
     Dosage: ORAL
     Route: 048

REACTIONS (3)
  - BLOOD GLUCOSE INCREASED [None]
  - DRUG INTERACTION [None]
  - HYPOGLYCAEMIA [None]
